FAERS Safety Report 7276099 (Version 9)
Quarter: 2012Q4

REPORT INFORMATION
  Report Type: 
  Country: JP (occurrence: JP)
  Receive Date: 20100211
  Receipt Date: 20120921
  Transmission Date: 20130627
  Serious: Yes (Hospitalization, Other)
  Sender: FDA-Public Use
  Company Number: JP-ABBOTT-10P-087-0624466-00

PATIENT
  Age: 72 Year
  Sex: Female
  Weight: 43.1 kg

DRUGS (18)
  1. HUMIRA [Suspect]
     Indication: RHEUMATOID ARTHRITIS
     Route: 058
     Dates: start: 20091008, end: 20091228
  2. METHOTREXATE [Suspect]
     Indication: RHEUMATOID ARTHRITIS
     Route: 048
     Dates: start: 20070814, end: 20090421
  3. METHOTREXATE [Suspect]
     Route: 048
     Dates: start: 20080422, end: 20081208
  4. METHOTREXATE [Suspect]
     Route: 048
     Dates: start: 20081209, end: 20100114
  5. ALENDRONATE SODIUM HYDRATE [Concomitant]
     Indication: OSTEOPOROSIS
     Route: 048
     Dates: start: 20070904
  6. ETODOLAC [Concomitant]
     Indication: RHEUMATOID ARTHRITIS
     Route: 048
     Dates: start: 20070904
  7. REBAMIPIDE [Concomitant]
     Indication: PROPHYLAXIS AGAINST GASTROINTESTINAL ULCER
     Route: 048
     Dates: start: 20070904, end: 20100114
  8. ALFACALCIDOL [Concomitant]
     Indication: OSTEOPOROSIS
     Dates: start: 20070904
  9. SULFAMETHOXAZOLE AND TRIMETHOPRIM [Concomitant]
     Indication: ANTIFUNGAL PROPHYLAXIS
     Route: 048
     Dates: start: 20090924, end: 20091105
  10. SULFAMETHOXAZOLE AND TRIMETHOPRIM [Concomitant]
     Indication: ANTIFUNGAL PROPHYLAXIS
  11. ISONIAZID [Concomitant]
     Indication: ANTIBIOTIC PROPHYLAXIS
     Route: 048
     Dates: start: 20090903, end: 20091214
  12. ISONIAZID [Concomitant]
     Dates: start: 20091215, end: 20100114
  13. PYRIDOXAL PHOSPHATE HYDRATE [Concomitant]
     Indication: ADVERSE EVENT
     Route: 048
     Dates: start: 20090903, end: 20100114
  14. PYRIDOXAL PHOSPHATE HYDRATE [Concomitant]
     Indication: PROPHYLAXIS
  15. PNEUMOCOCCUS VACCINE [Concomitant]
     Indication: PNEUMONIA
     Route: 058
     Dates: start: 20090924, end: 20090924
  16. PNEUMOCOCCUS VACCINE [Concomitant]
     Indication: PROPHYLAXIS
  17. FOLIC ACID [Concomitant]
     Indication: PROPHYLAXIS
     Dates: start: 20091105, end: 20091214
  18. FOLIC ACID [Concomitant]
     Indication: ADVERSE DRUG REACTION
     Dates: start: 20091215, end: 20100114

REACTIONS (9)
  - Demyelination [Recovering/Resolving]
  - Pyrexia [Unknown]
  - Hemiplegia [Unknown]
  - Cerebral infarction [Unknown]
  - Hemiparesis [Recovering/Resolving]
  - Hypokinesia [Recovering/Resolving]
  - Pleural effusion [Unknown]
  - Multiple sclerosis [Unknown]
  - Immobile [None]
